FAERS Safety Report 7476898-X (Version None)
Quarter: 2011Q2

REPORT INFORMATION
  Report Type: 
  Country: None (occurrence: None)
  Receive Date: 20110512
  Receipt Date: 20110505
  Transmission Date: 20111010
  Serious: Yes (Hospitalization)
  Sender: FDA-Public Use
  Company Number: US-B.I. PHARMACEUTICALS,INC./RIDGEFIELD-2010-BP-14436BP

PATIENT
  Sex: Male

DRUGS (19)
  1. CALCIUM [Concomitant]
     Indication: PROPHYLAXIS
     Dosage: 100 MG
     Route: 048
     Dates: start: 20030101
  2. MICARDIS HCT [Concomitant]
     Indication: HYPERTENSION
     Dosage: 40 MG
     Route: 048
     Dates: start: 20020101
  3. FOLIC ACID [Concomitant]
     Dosage: 1 MG
     Dates: start: 20020101
  4. NASAL CORT [Concomitant]
     Indication: HYPERSENSITIVITY
     Dosage: 1 SPRAY EACH NOSTRIL
     Route: 045
     Dates: start: 20070101
  5. COMGIGAN [Concomitant]
     Indication: GLAUCOMA
     Dosage: 1 GTT IN EACH EYE BID
     Dates: start: 20090101
  6. FLOMAX [Concomitant]
     Indication: PROSTATOMEGALY
     Dosage: 0.4 MG
     Dates: start: 20070101
  7. COSAMIN DS [Concomitant]
     Indication: PROPHYLAXIS
     Dosage: TWICE DAILY
     Route: 048
     Dates: start: 20030101
  8. SUPER BETA PROSTATE [Concomitant]
     Indication: PROPHYLAXIS
     Dosage: 1200 MG
     Route: 048
     Dates: start: 20030101
  9. PRADAXA [Suspect]
     Indication: ATRIAL FIBRILLATION
     Dosage: 300 MG
     Route: 048
     Dates: start: 20101209
  10. ASTEPROL [Concomitant]
     Indication: HYPERSENSITIVITY
     Dosage: 1 SPRAY IN EACH NOSTRIL
     Dates: start: 20101101
  11. VITAMIN D [Concomitant]
     Indication: PROPHYLAXIS
     Dosage: 1000 U
     Route: 048
     Dates: start: 20090101
  12. PROSCAR [Concomitant]
     Indication: PROSTATOMEGALY
     Dosage: 5 MG
     Route: 048
     Dates: start: 20090101
  13. TOPROL-XL [Concomitant]
     Indication: HYPERTENSION
     Dosage: 25 MG
     Route: 048
     Dates: start: 20020101
  14. LIPITOR [Concomitant]
     Indication: BLOOD CHOLESTEROL INCREASED
     Dosage: 10 MG
     Route: 048
     Dates: start: 20020101
  15. XALATAN [Concomitant]
     Indication: GLAUCOMA
     Dosage: 1 GTT IN BOTH EYES
     Route: 048
     Dates: start: 19900101
  16. COQ10 [Concomitant]
     Indication: PROPHYLAXIS
     Dosage: 100 MG
     Dates: start: 20030101
  17. LOVAZA [Concomitant]
     Indication: PROPHYLAXIS
     Dosage: 1000 MG
     Route: 048
     Dates: start: 20090101
  18. VITAMIN B-12 [Concomitant]
     Indication: PROPHYLAXIS
     Dosage: 1000 MG
     Route: 048
     Dates: start: 20020101
  19. ASPIRIN [Concomitant]
     Indication: PROPHYLAXIS
     Dosage: 81 MG
     Route: 048
     Dates: start: 20020101

REACTIONS (5)
  - HAEMATURIA [None]
  - HAEMORRHAGE [None]
  - ABDOMINAL PAIN UPPER [None]
  - MALAISE [None]
  - ABDOMINAL DISCOMFORT [None]
